FAERS Safety Report 19983643 (Version 1)
Quarter: 2021Q4

REPORT INFORMATION
  Report Type: Spontaneous
  Country: DE (occurrence: DE)
  Receive Date: 20211022
  Receipt Date: 20211022
  Transmission Date: 20220304
  Serious: Yes (Death, Life-Threatening, Hospitalization, Disabling, Other)
  Sender: FDA-Public Use
  Company Number: GB-MHRA-ADR 24655955

PATIENT
  Age: 5 Year
  Sex: Male

DRUGS (29)
  1. AMOXICILLIN\CLAVULANIC ACID [Suspect]
     Active Substance: AMOXICILLIN\CLAVULANIC ACID
     Indication: Pneumonia
     Dosage: UNK
     Route: 065
     Dates: start: 20150611
  2. AMOXICILLIN\CLAVULANIC ACID [Suspect]
     Active Substance: AMOXICILLIN\CLAVULANIC ACID
     Dosage: UNK
     Route: 065
     Dates: start: 20160714, end: 20160720
  3. MEROPENEM [Suspect]
     Active Substance: MEROPENEM
     Indication: Antibiotic therapy
     Dosage: UNK
     Route: 065
  4. CEFUROXIME [Suspect]
     Active Substance: CEFUROXIME
     Indication: Antibiotic therapy
     Dosage: UNK
     Route: 042
  5. FENTANYL [Suspect]
     Active Substance: FENTANYL
     Indication: Interstitial lung disease
     Dosage: UNK
     Route: 065
  6. FENTANYL [Suspect]
     Active Substance: FENTANYL
     Indication: Pneumococcal infection
  7. FENTANYL [Suspect]
     Active Substance: FENTANYL
     Indication: Respiratory tract infection
  8. FENTANYL [Suspect]
     Active Substance: FENTANYL
     Indication: Brain injury
  9. FENTANYL [Suspect]
     Active Substance: FENTANYL
     Indication: Cerebral ischaemia
  10. FENTANYL [Suspect]
     Active Substance: FENTANYL
     Indication: Intestinal ischaemia
  11. FENTANYL [Suspect]
     Active Substance: FENTANYL
     Indication: Circulatory collapse
  12. FENTANYL [Suspect]
     Active Substance: FENTANYL
     Indication: Pneumonia aspiration
  13. FENTANYL [Suspect]
     Active Substance: FENTANYL
     Indication: Pneumonia
  14. PIPERACILLIN AND TAZOBACTAM [Suspect]
     Active Substance: PIPERACILLIN SODIUM\TAZOBACTAM SODIUM
     Indication: Respiratory arrest
     Dosage: UNK
     Route: 065
  15. PIPERACILLIN AND TAZOBACTAM [Suspect]
     Active Substance: PIPERACILLIN SODIUM\TAZOBACTAM SODIUM
     Indication: Vomiting
  16. AMOXICILLIN [Suspect]
     Active Substance: AMOXICILLIN
     Indication: Product used for unknown indication
     Dosage: UNK
     Route: 065
  17. PENICILLIN G [Suspect]
     Active Substance: PENICILLIN G
     Indication: Product used for unknown indication
     Dosage: UNK
     Route: 065
  18. CIPROFLOXACIN [Suspect]
     Active Substance: CIPROFLOXACIN
     Indication: Product used for unknown indication
     Dosage: UNK
     Route: 065
  19. DORNASE ALFA [Suspect]
     Active Substance: DORNASE ALFA
     Indication: Interstitial lung disease
     Dosage: UNK
     Route: 065
  20. DEXTROSE [Suspect]
     Active Substance: DEXTROSE
     Indication: Pneumonia
     Dosage: UNK
     Route: 065
  21. POTASSIUM CHLORIDE [Suspect]
     Active Substance: POTASSIUM CHLORIDE
     Indication: Pneumonia
     Dosage: UNK
     Route: 065
  22. CLAVULANATE POTASSIUM [Suspect]
     Active Substance: CLAVULANATE POTASSIUM
     Indication: Product used for unknown indication
     Dosage: UNK
     Route: 065
  23. PENICILLIN V [Suspect]
     Active Substance: PENICILLIN V
     Indication: Antibiotic therapy
     Dosage: UNK
     Route: 065
  24. PROPOFOL [Suspect]
     Active Substance: PROPOFOL
     Indication: Product used for unknown indication
     Dosage: UNK
     Route: 065
  25. PULMOZYME [Suspect]
     Active Substance: DORNASE ALFA
     Indication: Interstitial lung disease
     Dosage: UNK
     Route: 065
  26. SODIUM CHLORIDE [Suspect]
     Active Substance: SODIUM CHLORIDE
     Indication: Pneumonia
     Dosage: UNK
     Route: 065
  27. ALBUTEROL [Suspect]
     Active Substance: ALBUTEROL
     Indication: Product used for unknown indication
     Dosage: UNK
     Route: 065
  28. TRISODIUM CITRATE DIHYDRATE [Suspect]
     Active Substance: TRISODIUM CITRATE DIHYDRATE
     Indication: Pneumonia
     Route: 065
  29. VENTOLIN [Suspect]
     Active Substance: ALBUTEROL SULFATE
     Indication: Product used for unknown indication
     Dosage: UNK
     Route: 065

REACTIONS (46)
  - Stoma closure [Fatal]
  - Ascites [Fatal]
  - Inflammation [Fatal]
  - Intestinal ischaemia [Fatal]
  - Chest X-ray abnormal [Unknown]
  - Diarrhoea [Fatal]
  - Pyrexia [Unknown]
  - Brain injury [Fatal]
  - Spinal muscular atrophy [Unknown]
  - Lymphadenectomy [Fatal]
  - Motor dysfunction [Unknown]
  - Brain injury [Fatal]
  - Vomiting [Unknown]
  - Pneumococcal sepsis [Recovered/Resolved]
  - Condition aggravated [Unknown]
  - Circulatory collapse [Fatal]
  - Inflammation [Unknown]
  - Cerebral ischaemia [Fatal]
  - Disease complication [Not Recovered/Not Resolved]
  - Lung consolidation [Unknown]
  - Dehydration [Fatal]
  - Sputum increased [Unknown]
  - Injury [Unknown]
  - Resuscitation [Unknown]
  - Atelectasis [Recovering/Resolving]
  - Scoliosis [Fatal]
  - Ischaemic cerebral infarction [Fatal]
  - Motor neurone disease [Fatal]
  - Interstitial lung disease [Unknown]
  - Bronchial disorder [Fatal]
  - Malaise [Unknown]
  - Lung infiltration [Fatal]
  - Pneumonia [Fatal]
  - Increased bronchial secretion [Unknown]
  - Respiratory tract infection bacterial [Unknown]
  - Atelectasis [Fatal]
  - Pneumonia aspiration [Not Recovered/Not Resolved]
  - Demyelination [Fatal]
  - Spinal muscular atrophy [Fatal]
  - Muscular weakness [Fatal]
  - Muscle atrophy [Fatal]
  - Tachypnoea [Unknown]
  - Metabolic disorder [Unknown]
  - Dysphagia [Unknown]
  - Dyspnoea [Unknown]
  - Respiratory arrest [Unknown]

NARRATIVE: CASE EVENT DATE: 20160620
